FAERS Safety Report 15332027 (Version 2)
Quarter: 2018Q3

REPORT INFORMATION
  Report Type: Spontaneous
  Country: JP (occurrence: JP)
  Receive Date: 20180829
  Receipt Date: 20180929
  Transmission Date: 20181010
  Serious: Yes (Hospitalization, Other)
  Sender: FDA-Public Use
  Company Number: PHJP2018JP012574

PATIENT
  Age: 77 Year
  Sex: Female
  Weight: 64 kg

DRUGS (7)
  1. GLACTIV [Concomitant]
     Active Substance: SITAGLIPTIN
     Indication: HYPERGLYCAEMIA
     Dosage: 25 MG, UNK
     Route: 065
  2. GLACTIV [Concomitant]
     Active Substance: SITAGLIPTIN
     Dosage: 25 MG, UNK
     Route: 065
     Dates: start: 20180608
  3. GLACTIV [Concomitant]
     Active Substance: SITAGLIPTIN
     Dosage: 25 MG, UNK
     Route: 065
     Dates: start: 20180609
  4. AFINITOR [Suspect]
     Active Substance: EVEROLIMUS
     Indication: BREAST CANCER
     Dosage: 10 MG, QD
     Route: 048
     Dates: start: 20180514
  5. EXEMESTANE. [Concomitant]
     Active Substance: EXEMESTANE
     Indication: BREAST CANCER
     Dosage: UNK
     Route: 065
     Dates: start: 20180514
  6. GLACTIV [Concomitant]
     Active Substance: SITAGLIPTIN
     Dosage: 25 MG, UNK
     Route: 065
     Dates: start: 20180611
  7. AFINITOR [Suspect]
     Active Substance: EVEROLIMUS
     Dosage: 5 MG, QD
     Route: 048
     Dates: start: 20180615

REACTIONS (6)
  - Concomitant disease aggravated [Recovering/Resolving]
  - Dehydration [Unknown]
  - Stomatitis [Recovering/Resolving]
  - Malaise [Unknown]
  - Diabetic ketoacidosis [Unknown]
  - Hyperglycaemia [Recovering/Resolving]

NARRATIVE: CASE EVENT DATE: 20180607
